FAERS Safety Report 8771595 (Version 6)
Quarter: 2013Q4

REPORT INFORMATION
  Report Type: Spontaneous
  Country: US (occurrence: US)
  Receive Date: 20120905
  Receipt Date: 20131220
  Transmission Date: 20140711
  Serious: Yes (Other)
  Sender: FDA-Public Use
  Company Number: US-ASTRAZENECA-2012SE65065

PATIENT
  Age: 80 Year
  Sex: Female
  Weight: 65.8 kg

DRUGS (2)
  1. NEXIUM [Suspect]
     Indication: OESOPHAGITIS
     Route: 048
     Dates: start: 2006
  2. NEXIUM [Suspect]
     Indication: OESOPHAGITIS
     Route: 048
     Dates: start: 2006

REACTIONS (5)
  - Oesophageal carcinoma [Unknown]
  - Hypoacusis [Not Recovered/Not Resolved]
  - Visual impairment [Unknown]
  - Off label use [Not Recovered/Not Resolved]
  - Intentional drug misuse [Not Recovered/Not Resolved]
